FAERS Safety Report 5929543-6 (Version None)
Quarter: 2008Q4

REPORT INFORMATION
  Report Type: 
  Country: None (occurrence: None)
  Receive Date: 20081024
  Receipt Date: 20081016
  Transmission Date: 20090506
  Serious: Yes (Death, Hospitalization)
  Sender: FDA-Public Use
  Company Number: B0542201A

PATIENT
  Age: 80 Year
  Sex: Female

DRUGS (8)
  1. ZOPHREN [Suspect]
     Indication: PREMEDICATION
     Dosage: 8MG PER DAY
     Route: 042
     Dates: start: 20080805, end: 20080805
  2. ENDOXAN [Suspect]
     Indication: BREAST CANCER
     Dosage: 825MG PER DAY
     Route: 042
     Dates: start: 20080805, end: 20080805
  3. FLUOROURACIL [Suspect]
     Indication: BREAST CANCER
     Dosage: 825MG PER DAY
     Route: 042
     Dates: start: 20080805, end: 20080805
  4. SOLU-MEDROL [Suspect]
     Indication: PREMEDICATION
     Dosage: 60MG PER DAY
     Route: 042
     Dates: start: 20080805, end: 20080805
  5. EPIRUBICIN [Suspect]
     Indication: BREAST CANCER
     Route: 042
     Dates: start: 20080805, end: 20080805
  6. TAXOTERE [Suspect]
     Indication: BREAST CANCER
     Dosage: 120MG PER DAY
     Dates: start: 20080715, end: 20080715
  7. MEDROL [Concomitant]
     Indication: BREAST CANCER
     Dosage: 300MG PER DAY
     Dates: start: 20080715, end: 20080715
  8. EUPRESSYL [Concomitant]

REACTIONS (8)
  - BRONCHITIS [None]
  - DYSPNOEA [None]
  - HYPOXIA [None]
  - LUNG DISORDER [None]
  - MEDIASTINAL DISORDER [None]
  - OBSTRUCTIVE AIRWAYS DISORDER [None]
  - PULMONARY FIBROSIS [None]
  - RESPIRATORY DISTRESS [None]
